FAERS Safety Report 4499712-3 (Version None)
Quarter: 2004Q4

REPORT INFORMATION
  Report Type: 
  Country: None (occurrence: None)
  Receive Date: 20041112
  Receipt Date: 20040824
  Transmission Date: 20050328
  Serious: Yes (Other)
  Sender: FDA-Public Use
  Company Number: 200416381US

PATIENT
  Sex: Female
  Weight: 54.1 kg

DRUGS (7)
  1. TAXOTERE [Suspect]
     Indication: BREAST CANCER
     Dates: start: 20040610, end: 20041021
  2. LIPITOR [Concomitant]
  3. PROTONIX [Concomitant]
  4. POTASSIUM [Concomitant]
  5. LISINOPRIL [Concomitant]
  6. LASIX [Concomitant]
  7. METOPROLOL [Concomitant]

REACTIONS (4)
  - ERYTHEMA [None]
  - EXTRAVASATION [None]
  - SKIN NECROSIS [None]
  - THROMBOPHLEBITIS SUPERFICIAL [None]
